FAERS Safety Report 15845209 (Version 5)
Quarter: 2022Q4

REPORT INFORMATION
  Report Type: Spontaneous
  Country: RO (occurrence: RO)
  Receive Date: 20190119
  Receipt Date: 20221019
  Transmission Date: 20230112
  Serious: Yes (Hospitalization, Other)
  Sender: FDA-Public Use
  Company Number: None

PATIENT
  Age: 49 Year
  Sex: Female

DRUGS (12)
  1. ARIPIPRAZOLE [Suspect]
     Active Substance: ARIPIPRAZOLE
     Indication: Schizophrenia
     Dosage: UNK
     Route: 065
  2. DEXAMETHASONE [Suspect]
     Active Substance: DEXAMETHASONE
     Indication: Product used for unknown indication
     Dosage: UNK
     Route: 065
     Dates: start: 2015
  3. METHYLPREDNISOLONE [Suspect]
     Active Substance: METHYLPREDNISOLONE
     Indication: Visual acuity reduced
     Dosage: 1 G, BID (DIVIDED IN TWO DOSES),32 G/DAY DECREASING GRADUALLY
     Route: 042
     Dates: start: 2015, end: 2016
  4. TRIAMCINOLONE [Suspect]
     Active Substance: TRIAMCINOLONE
     Dates: start: 2015, end: 2016
  5. PREDNISONE [Suspect]
     Active Substance: PREDNISONE
     Indication: Uveitis
     Dosage: LOW DOSE
     Route: 065
     Dates: start: 201605
  6. METHYLPREDNISOLONE [Concomitant]
     Active Substance: METHYLPREDNISOLONE
     Dosage: DIVIDED IN TWO DOSES
     Route: 042
  7. BEVACIZUMAB [Concomitant]
     Active Substance: BEVACIZUMAB
     Dates: start: 2015, end: 2016
  8. METHOTREXATE [Concomitant]
     Active Substance: METHOTREXATE
     Indication: Choroiditis
     Dosage: 12.5 MG, QW
     Route: 065
     Dates: start: 201605
  9. VANCOMYCIN [Concomitant]
     Active Substance: VANCOMYCIN
     Indication: Product used for unknown indication
     Dosage: UNK
     Route: 065
  10. TRIAMCINOLONE [Concomitant]
     Active Substance: TRIAMCINOLONE
     Route: 065
  11. CALCIUM [Concomitant]
     Active Substance: CALCIUM
     Indication: Product used for unknown indication
  12. METHYLPREDNISOLONE [Suspect]
     Active Substance: METHYLPREDNISOLONE
     Indication: Retinal white dots syndrome
     Dosage: 32 G/DAY DECREASING GRADUALLY
     Dates: start: 2015, end: 2016

REACTIONS (7)
  - Chorioretinopathy [Recovering/Resolving]
  - Uveitis [Recovering/Resolving]
  - Birdshot chorioretinopathy [Recovering/Resolving]
  - Cushing^s syndrome [Unknown]
  - Retinal white dots syndrome [Unknown]
  - Drug ineffective [Unknown]
  - Choroiditis [Recovering/Resolving]
